FAERS Safety Report 7928943-2 (Version None)
Quarter: 2011Q4

REPORT INFORMATION
  Report Type: 
  Country: None (occurrence: None)
  Receive Date: 20111118
  Receipt Date: 20111116
  Transmission Date: 20120403
  Serious: Yes (Hospitalization)
  Sender: FDA-Public Use
  Company Number: IE-MERCK-1111GBR00042

PATIENT
  Sex: Male

DRUGS (5)
  1. ZETIA [Suspect]
     Indication: BLOOD TRIGLYCERIDES ABNORMAL
     Route: 048
     Dates: start: 20100520
  2. OLMESARTAN MEDOXOMIL [Concomitant]
     Route: 065
  3. ALLOPURINOL [Concomitant]
     Route: 065
  4. FELODIPINE [Concomitant]
     Route: 065
  5. ROSUVASTATIN CALCIUM [Concomitant]
     Route: 065

REACTIONS (1)
  - AMNESIA [None]
